FAERS Safety Report 6228220-4 (Version None)
Quarter: 2009Q2

REPORT INFORMATION
  Report Type: 
  Country: None (occurrence: None)
  Receive Date: 20090612
  Receipt Date: 20090529
  Transmission Date: 20091009
  Serious: Yes (Life-Threatening, Hospitalization)
  Sender: FDA-Public Use
  Company Number: FR-GENENTECH-284521

PATIENT
  Sex: Male

DRUGS (4)
  1. MABTHERA [Suspect]
     Indication: NON-HODGKIN'S LYMPHOMA
     Dosage: 720 MG, UNK
     Route: 042
     Dates: start: 20090107, end: 20090401
  2. ONCOVIN [Suspect]
     Indication: NON-HODGKIN'S LYMPHOMA
     Dosage: 2 MG, UNK
     Route: 042
     Dates: start: 20090107, end: 20090401
  3. ENDOXAN [Suspect]
     Indication: NON-HODGKIN'S LYMPHOMA
     Dosage: 1440 MG, UNK
     Route: 042
     Dates: start: 20090107, end: 20090401
  4. ADRIAMYCIN RDF [Suspect]
     Indication: NON-HODGKIN'S LYMPHOMA
     Dosage: 96 MG, UNK
     Route: 042
     Dates: start: 20090107, end: 20090401

REACTIONS (2)
  - ACUTE RESPIRATORY DISTRESS SYNDROME [None]
  - LUNG DISORDER [None]
